FAERS Safety Report 7419073-7 (Version None)
Quarter: 2011Q2

REPORT INFORMATION
  Report Type: 
  Country: None (occurrence: None)
  Receive Date: 20110415
  Receipt Date: 20110413
  Transmission Date: 20111010
  Serious: Yes (Death)
  Sender: FDA-Public Use
  Company Number: PHHY2011US31138

PATIENT
  Sex: Female

DRUGS (2)
  1. ANTIEMETICS AND ANTINAUSEANTS [Concomitant]
  2. GLEEVEC [Suspect]
     Route: 048

REACTIONS (1)
  - DEATH [None]
